FAERS Safety Report 6115921-1 (Version None)
Quarter: 2009Q1

REPORT INFORMATION
  Report Type: 
  Country: None (occurrence: None)
  Receive Date: 20090311
  Receipt Date: 20090305
  Transmission Date: 20090719
  Serious: Yes (Life-Threatening, Hospitalization)
  Sender: FDA-Public Use
  Company Number: US025584

PATIENT
  Age: 77 Year
  Sex: Male

DRUGS (2)
  1. TRISENOX [Suspect]
     Indication: ACUTE MYELOID LEUKAEMIA
     Dosage: INTRAVENOUS DRIP
     Route: 041
     Dates: start: 20090302, end: 20090304
  2. ARA-C [Suspect]
     Indication: ACUTE MYELOID LEUKAEMIA
     Dates: start: 20090302, end: 20090304

REACTIONS (2)
  - SEPSIS [None]
  - TUMOUR LYSIS SYNDROME [None]
